FAERS Safety Report 8256397-8 (Version None)
Quarter: 2012Q2

REPORT INFORMATION
  Report Type: 
  Country: None (occurrence: None)
  Receive Date: 20120403
  Receipt Date: 20120321
  Transmission Date: 20120825
  Serious: Yes (Hospitalization, Other)
  Sender: FDA-Public Use
  Company Number: DK-ELI_LILLY_AND_COMPANY-DK201203008928

PATIENT
  Age: 32 Year
  Sex: Female

DRUGS (4)
  1. LITHIUM CARBONATE [Concomitant]
     Indication: BIPOLAR I DISORDER
  2. LAMICTAL [Concomitant]
     Indication: BIPOLAR I DISORDER
  3. ZYPREXA [Suspect]
     Indication: BIPOLAR I DISORDER
     Dosage: UNK
     Route: 048
  4. ZYPREXA [Suspect]
     Dosage: 10 MG, UNK
     Route: 048

REACTIONS (6)
  - FEAR [None]
  - PRE-ECLAMPSIA [None]
  - BLOOD PRESSURE INCREASED [None]
  - INSOMNIA [None]
  - HOSPITALISATION [None]
  - MATERNAL EXPOSURE DURING PREGNANCY [None]
